FAERS Safety Report 18690398 (Version 8)
Quarter: 2021Q1

REPORT INFORMATION
  Report Type: Report from Study
  Country: FI (occurrence: FI)
  Receive Date: 20210101
  Receipt Date: 20210318
  Transmission Date: 20210419
  Serious: Yes (Death, Hospitalization)
  Sender: FDA-Public Use
  Company Number: FI-ROCHE-2640256

PATIENT
  Age: 62 Year
  Sex: Female
  Weight: 56 kg

DRUGS (31)
  1. PLACEBO [Suspect]
     Active Substance: UNSPECIFIED INGREDIENT
     Indication: TRIPLE NEGATIVE BREAST CANCER
     Dosage: ON 23/JUN/2020, AT 11:55 AM, SHE RECEIVED THE MOST RECENT AND LAST DOSE OF THE PLACEBO PRIOR TO AE/S
     Route: 042
     Dates: start: 20200525
  2. FAMOTIDIN [Concomitant]
     Active Substance: FAMOTIDINE
     Route: 048
     Dates: start: 20200525, end: 20200714
  3. CETIRIZINE HYDROCHLORIDE. [Concomitant]
     Active Substance: CETIRIZINE HYDROCHLORIDE
     Indication: HYPERSENSITIVITY
     Route: 048
     Dates: start: 20200525
  4. LOPEX [Concomitant]
     Indication: DIARRHOEA
     Route: 048
     Dates: start: 20200525
  5. ORADEXON [Concomitant]
     Active Substance: DEXAMETHASONE
     Indication: HYPERSENSITIVITY
     Dosage: PRN (AS NEEDED)
     Route: 042
     Dates: start: 20200609, end: 20200714
  6. PACLITAXEL. [Suspect]
     Active Substance: PACLITAXEL
     Indication: TRIPLE NEGATIVE BREAST CANCER
     Dosage: DOSE OF STUDY DRUG FIRST ADMINISTERED 124 MG?ON 23/JUN/2020, AT 01:24 PM, SHE HE RECEIVED THE MOST R
     Route: 042
     Dates: start: 20200525
  7. REVITELLE [Concomitant]
     Indication: RASH
     Route: 048
     Dates: start: 20200602, end: 20200708
  8. HYDROCORTISONE. [Concomitant]
     Active Substance: HYDROCORTISONE
     Indication: RASH
     Route: 061
     Dates: start: 20200605
  9. KEFEXIN [Concomitant]
     Active Substance: CEPHALEXIN
     Indication: SKIN INFECTION
     Route: 048
     Dates: start: 20200706, end: 20200715
  10. CEFUROXIME. [Concomitant]
     Active Substance: CEFUROXIME
     Indication: PNEUMONIA
     Route: 042
     Dates: start: 20201110, end: 20201122
  11. PARACETAMOL [Concomitant]
     Active Substance: ACETAMINOPHEN
     Indication: PAIN
     Dosage: PRN (AS NEEDED)
     Route: 048
  12. FUCIDIN [Concomitant]
     Active Substance: FUSIDATE SODIUM
     Indication: RASH
     Route: 061
     Dates: start: 20200605
  13. IMOVANE [Concomitant]
     Active Substance: ZOPICLONE
     Indication: SLEEP DISORDER
     Dosage: PRN (AS NEEDED)
     Route: 048
     Dates: start: 20200602
  14. FEXOFENADINE [Concomitant]
     Active Substance: FEXOFENADINE HYDROCHLORIDE
     Indication: RASH
     Route: 048
     Dates: start: 20200525, end: 20200602
  15. AFTAB [Concomitant]
     Dosage: 25 UG
     Route: 048
     Dates: start: 20200605, end: 20200630
  16. PRIMPERAN [Concomitant]
     Active Substance: METOCLOPRAMIDE HYDROCHLORIDE
     Indication: NAUSEA
     Dosage: PRN (AS NEEDED)
     Route: 048
     Dates: start: 20200525
  17. ORADEXON [Concomitant]
     Active Substance: DEXAMETHASONE
     Route: 042
     Dates: start: 20200525, end: 20200602
  18. CERALAN [Concomitant]
     Indication: RASH
     Route: 061
     Dates: start: 20200609
  19. CEPHALEXIN MONOHYDRATE. [Concomitant]
     Active Substance: CEPHALEXIN MONOHYDRATE
  20. KLEXANE [Concomitant]
     Active Substance: ENOXAPARIN
     Route: 058
     Dates: start: 20200717
  21. TAVEGYL [Concomitant]
     Active Substance: CLEMASTINE FUMARATE
     Route: 042
     Dates: start: 20200602, end: 20200602
  22. SOMAC [Concomitant]
     Active Substance: PANTOPRAZOLE SODIUM
     Indication: GASTRITIS
     Dosage: PRN (AS NEEDED)
     Route: 048
     Dates: start: 20200525
  23. PIPERACILLIN AND TAZOBACTAM [Concomitant]
     Active Substance: PIPERACILLIN SODIUM\TAZOBACTAM SODIUM
     Indication: PNEUMONIA
     Route: 042
     Dates: start: 20201122, end: 20201129
  24. TAVEGYL [Concomitant]
     Active Substance: CLEMASTINE FUMARATE
     Route: 042
     Dates: start: 20200714, end: 20200716
  25. PLACEBO [Suspect]
     Active Substance: UNSPECIFIED INGREDIENT
     Indication: TRIPLE NEGATIVE BREAST CANCER
     Dosage: ON 29/JUN/2020 SHE RECEIVED THE MOST RECENT AND LAST DOSE OF THE PLACEBO PRIOR TO AE/SAE (ADVERSE EV
     Route: 048
     Dates: start: 20200525
  26. GRANISETRON [Concomitant]
     Active Substance: GRANISETRON
     Indication: NAUSEA
     Route: 048
     Dates: start: 20200525
  27. PREDNISOLON [Concomitant]
     Active Substance: PREDNISOLONE
     Indication: RASH
     Route: 048
     Dates: start: 20200526, end: 20200714
  28. TAVEGYL [Concomitant]
     Active Substance: CLEMASTINE FUMARATE
     Indication: INFUSION RELATED REACTION
     Route: 042
     Dates: start: 20200609, end: 20200714
  29. PREDNISOLON [Concomitant]
     Active Substance: PREDNISOLONE
     Indication: MYOSITIS
  30. EPIRUBICIN [Concomitant]
     Active Substance: EPIRUBICIN
     Dates: start: 20201027, end: 20201104
  31. EPIRUBICIN [Concomitant]
     Active Substance: EPIRUBICIN
     Dates: start: 20201027, end: 20201104

REACTIONS (3)
  - Aspartate aminotransferase increased [Recovered/Resolved]
  - Myositis [Fatal]
  - Infusion related reaction [Recovered/Resolved]

NARRATIVE: CASE EVENT DATE: 20200602
